FAERS Safety Report 4292976-0 (Version None)
Quarter: 2004Q1

REPORT INFORMATION
  Report Type: 
  Country: None (occurrence: None)
  Receive Date: 20040212
  Receipt Date: 20030806
  Transmission Date: 20041129
  Serious: Yes (Other)
  Sender: FDA-Public Use
  Company Number: US-GLAXOSMITHKLINE-A0419776A

PATIENT
  Age: 57 Year
  Sex: Male

DRUGS (3)
  1. PAXIL [Suspect]
     Route: 048
     Dates: end: 20030802
  2. AMITRIPTYLINE [Concomitant]
  3. NARCOTICS [Concomitant]

REACTIONS (2)
  - AGITATION [None]
  - DRUG WITHDRAWAL SYNDROME [None]
